FAERS Safety Report 6714923-1 (Version None)
Quarter: 2010Q2

REPORT INFORMATION
  Report Type: 
  Country: None (occurrence: None)
  Receive Date: 20100507
  Receipt Date: 20100420
  Transmission Date: 20101027
  Serious: Yes (Hospitalization, Other)
  Sender: FDA-Public Use
  Company Number: US-BAYER-200942680NA

PATIENT
  Age: 30 Year
  Sex: Female
  Weight: 57 kg

DRUGS (10)
  1. YAZ [Suspect]
     Indication: CONTRACEPTION
     Route: 048
     Dates: start: 20090201, end: 20090901
  2. OCELLA [Suspect]
     Indication: CONTRACEPTION
     Dates: start: 20090201, end: 20090901
  3. NICOTINE [Concomitant]
  4. ATIVAN [Concomitant]
  5. SUPRIVA [Concomitant]
  6. ADVAIR DISKUS 100/50 [Concomitant]
  7. PRILOSEC [Concomitant]
  8. LORAZEPAM [Concomitant]
  9. PAROXETINE HCL [Concomitant]
  10. WARFARIN SODIUM [Concomitant]

REACTIONS (5)
  - AFFECTIVE DISORDER [None]
  - DEEP VEIN THROMBOSIS [None]
  - DYSPNOEA [None]
  - PLEURITIC PAIN [None]
  - PULMONARY EMBOLISM [None]
